FAERS Safety Report 19161316 (Version 2)
Quarter: 2023Q2

REPORT INFORMATION
  Report Type: Other
  Country: IT (occurrence: IT)
  Receive Date: 20210421
  Receipt Date: 20230522
  Transmission Date: 20230721
  Serious: Yes (Other)
  Sender: FDA-Public Use
  Company Number: IT-EUSA PHARMA (UK) LIMITED-2021IT000072

PATIENT

DRUGS (12)
  1. SYLVANT [Suspect]
     Active Substance: SILTUXIMAB
     Indication: Castleman^s disease
     Dosage: 11 MG/KG, EVERY 3 WEEKS, CYCLE 1
     Route: 042
  2. SYLVANT [Suspect]
     Active Substance: SILTUXIMAB
     Dosage: 11 MG/KG, EVERY 3 WEEKS, CYCLE 2
     Route: 042
  3. SYLVANT [Suspect]
     Active Substance: SILTUXIMAB
     Dosage: 11 MG/KG, EVERY 3 WEEKS, CYCLE 3
     Route: 042
  4. TOCILIZUMAB [Concomitant]
     Active Substance: TOCILIZUMAB
     Indication: Castleman^s disease
     Dosage: 8 MG/KG
     Route: 065
  5. IMMUNE GLOBULIN NOS [Concomitant]
     Active Substance: IMMUNE GLOBULIN NOS
     Indication: Castleman^s disease
     Dosage: 25 G/DIE INFUSION
     Route: 042
  6. CYCLOSPORINE [Concomitant]
     Active Substance: CYCLOSPORINE
     Indication: Castleman^s disease
     Dosage: (CSA, TARGET 100 TO 200 MCG/L) ASSOCIATED TO TOCILIZUMAB FOR SIX MONTHS
     Route: 065
  7. SIROLIMUS [Concomitant]
     Active Substance: SIROLIMUS
     Indication: Castleman^s disease
     Dosage: (TARGET 12 TO 20 NG/ML)
     Route: 065
  8. INTERLEUKIN-1 [Concomitant]
     Indication: Castleman^s disease
     Dosage: UNK
     Route: 065
  9. ANAKINRA [Concomitant]
     Active Substance: ANAKINRA
     Indication: Castleman^s disease
     Dosage: 100 MG/DIE
     Route: 065
  10. THALIDOMIDE [Concomitant]
     Active Substance: THALIDOMIDE
     Indication: Castleman^s disease
     Dosage: UNK
     Route: 065
  11. CYCLOPHOSPHAMIDE [Concomitant]
     Active Substance: CYCLOPHOSPHAMIDE
     Indication: Castleman^s disease
     Route: 065
  12. PREDNISONE [Concomitant]
     Active Substance: PREDNISONE
     Indication: Castleman^s disease
     Dosage: UNK
     Route: 065

REACTIONS (1)
  - Drug ineffective [Unknown]
